FAERS Safety Report 7016701-5 (Version None)
Quarter: 2010Q3

REPORT INFORMATION
  Report Type: 
  Country: None (occurrence: None)
  Receive Date: 20100909
  Receipt Date: 20100727
  Transmission Date: 20110219
  Serious: No
  Sender: FDA-Public Use
  Company Number: 2010SP041069

PATIENT
  Age: 16 Year
  Sex: Female

DRUGS (1)
  1. SAPHRIS [Suspect]
     Indication: SCHIZOAFFECTIVE DISORDER
     Dosage: 10 MG;BID;SL,
     Route: 060
     Dates: start: 20100629

REACTIONS (3)
  - ORAL PAIN [None]
  - PHARYNGEAL ULCERATION [None]
  - TONGUE ULCERATION [None]
